FAERS Safety Report 22093509 (Version 1)
Quarter: 2023Q1

REPORT INFORMATION
  Report Type: Spontaneous
  Country: None (occurrence: US)
  Receive Date: 20230314
  Receipt Date: 20230314
  Transmission Date: 20230417
  Serious: No
  Sender: FDA-Public Use
  Company Number: US-Mission Pharmacal Company-2139037

PATIENT
  Age: 33 Year
  Sex: Female

DRUGS (2)
  1. UROCIT-K [Suspect]
     Active Substance: POTASSIUM CITRATE
     Indication: Cystinuria
     Route: 048
  2. THIOLA EC [Concomitant]
     Active Substance: TIOPRONIN
     Route: 048
     Dates: start: 20200807

REACTIONS (1)
  - Drug ineffective [Unknown]
